FAERS Safety Report 8554071-1 (Version None)
Quarter: 2012Q3

REPORT INFORMATION
  Report Type: 
  Country: None (occurrence: None)
  Receive Date: 20120731
  Receipt Date: 20120716
  Transmission Date: 20120928
  Serious: No
  Sender: FDA-Public Use
  Company Number: US-ASTRAZENECA-2011SE34949

PATIENT
  Age: 58 Year
  Sex: Female
  Weight: 52.6 kg

DRUGS (9)
  1. CARBABENZINE [Concomitant]
  2. SEROQUEL [Suspect]
     Route: 048
  3. SEROQUEL [Suspect]
     Indication: BIPOLAR DISORDER
     Route: 048
     Dates: start: 20080101
  4. OXYCONTIN [Concomitant]
  5. XANAX [Concomitant]
  6. LORTAB [Concomitant]
  7. SOMA [Concomitant]
  8. OMEPRAZOLE [Concomitant]
  9. CELEXA [Concomitant]

REACTIONS (10)
  - PHOBIC AVOIDANCE [None]
  - NIGHTMARE [None]
  - INSOMNIA [None]
  - IMPAIRED DRIVING ABILITY [None]
  - ADVERSE EVENT [None]
  - TACHYPHRENIA [None]
  - HEAT ILLNESS [None]
  - ANXIETY [None]
  - DRUG DOSE OMISSION [None]
  - INTENTIONAL DRUG MISUSE [None]
